FAERS Safety Report 21234786 (Version 2)
Quarter: 2022Q3

REPORT INFORMATION
  Report Type: Report from Study
  Country: DE (occurrence: DE)
  Receive Date: 20220820
  Receipt Date: 20220908
  Transmission Date: 20221027
  Serious: Yes (Hospitalization, Other)
  Sender: FDA-Public Use
  Company Number: DE-MYLANLABS-2022M1080177

PATIENT
  Sex: Female

DRUGS (39)
  1. HYDROXYCHLOROQUINE [Suspect]
     Active Substance: HYDROXYCHLOROQUINE
     Indication: Rheumatoid arthritis
     Dosage: UNIT DOSE : 400 MILLIGRAM ,HYDROXYCHLOROQUINE ,  THERAPY  END DATE : ASKU
     Route: 065
     Dates: start: 20191025
  2. HYDROXYCHLOROQUINE [Suspect]
     Active Substance: HYDROXYCHLOROQUINE
     Dosage: UNIT DOSE : 350 MILLIGRAM , THERAPY  END DATE : ASKU
     Route: 065
     Dates: start: 20200813
  3. HYDROXYCHLOROQUINE [Suspect]
     Active Substance: HYDROXYCHLOROQUINE
     Dosage: UNK
     Route: 065
     Dates: start: 20210709
  4. HYDROXYCHLOROQUINE [Suspect]
     Active Substance: HYDROXYCHLOROQUINE
     Dosage: UNIT DOSE : 400 MILLIGRAM ,  THERAPY  END DATE : ASKU
     Route: 065
     Dates: start: 20200207
  5. HYDROXYCHLOROQUINE [Suspect]
     Active Substance: HYDROXYCHLOROQUINE
     Dosage: UNIT DOSE : 343 MILLIGRAM , THERAPY  END DATE : ASKU
     Route: 065
     Dates: start: 20210205
  6. HYDROXYCHLOROQUINE [Suspect]
     Active Substance: HYDROXYCHLOROQUINE
     Dosage: UNIT DOSE : 400MG  MILLIGRAM , THERAPY  END DATE : ASKU
     Route: 065
     Dates: start: 20171128
  7. HYDROXYCHLOROQUINE [Suspect]
     Active Substance: HYDROXYCHLOROQUINE
     Dosage: UNIT DOSE : 400 MILLIGRAM ,HYDROXYCHLOROQUINE ,  THERAPY  END DATE : ASKU
     Route: 065
     Dates: start: 20180409
  8. HYDROXYCHLOROQUINE [Suspect]
     Active Substance: HYDROXYCHLOROQUINE
     Dosage: UNIT DOSE : 400 MILLIGRAM ,  THERAPY  END DATE : ASKU
     Route: 065
     Dates: start: 20161011
  9. HYDROXYCHLOROQUINE [Suspect]
     Active Substance: HYDROXYCHLOROQUINE
     Dosage: UNK
     Route: 065
  10. HYDROXYCHLOROQUINE [Suspect]
     Active Substance: HYDROXYCHLOROQUINE
     Dosage: UNIT DOSE : 600 MG , THERAPY END DATE : ASKU
     Route: 065
     Dates: start: 20220117
  11. HYDROXYCHLOROQUINE [Suspect]
     Active Substance: HYDROXYCHLOROQUINE
     Dosage: UNK
     Route: 065
     Dates: start: 20160503
  12. HYDROXYCHLOROQUINE [Suspect]
     Active Substance: HYDROXYCHLOROQUINE
     Dosage: UNIT DOSE : 400 MILLIGRAM ,HYDROXYCHLOROQUINE ,  THERAPY  END DATE : ASKU
     Route: 065
     Dates: start: 20180808
  13. METHOTREXATE [Suspect]
     Active Substance: METHOTREXATE
     Indication: Rheumatoid arthritis
     Dosage: UNIT DOSE :20 MILLIGRAM ,  THERAPY  END DATE : ASKU
     Dates: start: 20180808
  14. METHOTREXATE [Suspect]
     Active Substance: METHOTREXATE
     Dosage: UNIT DOSE :20 MILLIGRAM ,  THERAPY  END DATE : ASKU
     Dates: start: 20180409
  15. METHOTREXATE [Suspect]
     Active Substance: METHOTREXATE
     Dosage: UNIT DOSE :25 MILLIGRAM ,  THERAPY  END DATE : ASKU
     Dates: start: 20161011
  16. METHOTREXATE [Suspect]
     Active Substance: METHOTREXATE
     Dosage: UNIT DOSE :25 MILLIGRAM ,  THERAPY  END DATE : ASKU
     Dates: start: 20171128
  17. METHOTREXATE [Suspect]
     Active Substance: METHOTREXATE
     Dosage: UNIT DOSE :20 MILLIGRAM ,  THERAPY  END DATE : ASKU
     Dates: start: 20131209
  18. METHOTREXATE [Suspect]
     Active Substance: METHOTREXATE
     Dosage: UNIT DOSE :20 MILLIGRAM ,  THERAPY  END DATE : ASKU
     Dates: start: 20140825
  19. METHOTREXATE [Suspect]
     Active Substance: METHOTREXATE
     Dosage: UNIT DOSE :20 MILLIGRAM ,  THERAPY  END DATE : ASKU
     Dates: start: 20150609
  20. METHOTREXATE [Suspect]
     Active Substance: METHOTREXATE
     Dosage: UNIT DOSE :20 MILLIGRAM ,  THERAPY  END DATE : ASKU
     Dates: start: 20140414
  21. METHOTREXATE [Suspect]
     Active Substance: METHOTREXATE
     Dosage: UNIT DOSE :25 MILLIGRAM ,  THERAPY  END DATE : ASKU
     Dates: start: 20160503
  22. METHOTREXATE [Suspect]
     Active Substance: METHOTREXATE
     Dosage: UNIT DOSE :25 MILLIGRAM ,  THERAPY  END DATE : ASKU
     Dates: start: 20170214
  23. METHOTREXATE [Suspect]
     Active Substance: METHOTREXATE
     Dosage: UNIT DOSE :20 MILLIGRAM ,  THERAPY  END DATE : ASKU
     Dates: start: 20130917
  24. METHOTREXATE [Suspect]
     Active Substance: METHOTREXATE
     Dosage: UNIT DOSE :10 MILLIGRAM ,  THERAPY  END DATE : ASKU
     Dates: start: 20200207
  25. METHOTREXATE [Suspect]
     Active Substance: METHOTREXATE
     Dosage: UNIT DOSE :20 MILLIGRAM ,  THERAPY  END DATE : ASKU
     Dates: start: 20150115
  26. METHOTREXATE [Suspect]
     Active Substance: METHOTREXATE
     Dosage: UNIT DOSE :10 MILLIGRAM ,  THERAPY  END DATE : ASKU
     Dates: start: 20200813
  27. METHOTREXATE [Suspect]
     Active Substance: METHOTREXATE
     Dosage: UNIT DOSE :10 MILLIGRAM ,  THERAPY  END DATE : ASKU
     Dates: start: 20210205
  28. METHOTREXATE [Suspect]
     Active Substance: METHOTREXATE
     Dosage: UNIT DOSE :10 MILLIGRAM ,  THERAPY  END DATE : ASKU
     Dates: start: 20210709
  29. SULFASALAZINE [Suspect]
     Active Substance: SULFASALAZINE
     Indication: Rheumatoid arthritis
     Dosage: UNIT DOSE :1000 MILLIGRAM ,  THERAPY  END DATE : ASKU
     Route: 065
     Dates: start: 20160503
  30. CIMZIA [Suspect]
     Active Substance: CERTOLIZUMAB PEGOL
     Indication: Rheumatoid arthritis
     Dosage: 400 MILLIGRAM , UNIT DOSE : 400 MG , DURATION : 13 MONTHS
     Route: 065
     Dates: start: 201309, end: 201410
  31. CIMZIA [Suspect]
     Active Substance: CERTOLIZUMAB PEGOL
     Dosage: UNIT DOSE : 200MG  , THERAPY START DATE : ASKU , THERAPY END DATE : ASKU
     Route: 065
  32. ENBREL [Suspect]
     Active Substance: ETANERCEPT
     Indication: Rheumatoid arthritis
     Dosage: UNIT DOSE :50 MILLIGRAM , DURATION : 5 MONTH
     Dates: start: 201501, end: 201506
  33. ENBREL [Suspect]
     Active Substance: ETANERCEPT
     Dosage: UNIT DOSE :50 MILLIGRAM , DURATION : 1 MONTH
     Dates: start: 201410, end: 201411
  34. TOCILIZUMAB [Suspect]
     Active Substance: TOCILIZUMAB
     Indication: Rheumatoid arthritis
     Dosage: 162 MILLIGRAM , UNIT DOSE : 162 MG , DURATION : 3 MONTH
     Route: 065
     Dates: start: 201507, end: 201510
  35. MABTHERA [Suspect]
     Active Substance: RITUXIMAB
     Indication: Rheumatoid arthritis
     Dosage: UNIT DOSE : 1000 MG ,  THERAPY  END DATE : ASKU
     Dates: start: 201602
  36. MABTHERA [Suspect]
     Active Substance: RITUXIMAB
     Dosage: UNIT DOSE : 1000 MG ,  THERAPY  END DATE : ASKU
     Dates: start: 201804
  37. MABTHERA [Suspect]
     Active Substance: RITUXIMAB
     Dosage: UNIT DOSE : 1000 MG ,  THERAPY  END DATE : ASKU
     Dates: start: 201703
  38. MABTHERA [Suspect]
     Active Substance: RITUXIMAB
     Dosage: UNIT DOSE : 1000 MG ,  THERAPY  END DATE : ASKU
     Dates: start: 201609
  39. ORENCIA [Suspect]
     Active Substance: ABATACEPT
     Indication: Rheumatoid arthritis
     Dosage: 750 MILLIGRAM , UNIT DOSE : 750 MG , DURATION : 2 MONTH
     Dates: start: 201510, end: 201512

REACTIONS (13)
  - Cornea verticillata [Not Recovered/Not Resolved]
  - Osteoarthritis [Recovered/Resolved]
  - Pulmonary embolism [Not Recovered/Not Resolved]
  - Corneal dystrophy [Not Recovered/Not Resolved]
  - Spondylolisthesis [Not Recovered/Not Resolved]
  - Dysaesthesia [Not Recovered/Not Resolved]
  - Pneumonia [Recovered/Resolved]
  - Deep vein thrombosis [Unknown]
  - Cataract [Recovered/Resolved]
  - Urinary incontinence [Not Recovered/Not Resolved]
  - Skin papilloma [Unknown]
  - Urinary tract infection [Not Recovered/Not Resolved]
  - Tendon rupture [Not Recovered/Not Resolved]

NARRATIVE: CASE EVENT DATE: 20190101
